FAERS Safety Report 17787704 (Version 1)
Quarter: 2020Q2

REPORT INFORMATION
  Report Type: Spontaneous
  Country: US (occurrence: US)
  Receive Date: 20200514
  Receipt Date: 20200514
  Transmission Date: 20200714
  Serious: Yes (Hospitalization, Other)
  Sender: FDA-Public Use
  Company Number: US-PURDUE-USA-2020-0152435

PATIENT
  Sex: Male

DRUGS (5)
  1. HYDROCODONE BITARTRATE (SIMILAR TO NDA 206627) [Suspect]
     Active Substance: HYDROCODONE BITARTRATE
     Indication: HEADACHE
     Dosage: UNKNOWN
     Route: 048
     Dates: end: 20190701
  2. HYDROCODONE BITARTRATE (SIMILAR TO NDA 206627) [Suspect]
     Active Substance: HYDROCODONE BITARTRATE
     Indication: NECK PAIN
  3. HYDROCODONE BITARTRATE AND ACETAMINOPHEN [Suspect]
     Active Substance: ACETAMINOPHEN\HYDROCODONE BITARTRATE
     Indication: NECK PAIN
     Dosage: UNKNOWN
     Route: 048
     Dates: end: 20190701
  4. TRAMADOL. [Suspect]
     Active Substance: TRAMADOL
     Indication: PRODUCT USED FOR UNKNOWN INDICATION
     Dosage: UNK
     Route: 065
  5. HYDROCODONE BITARTRATE AND ACETAMINOPHEN [Suspect]
     Active Substance: ACETAMINOPHEN\HYDROCODONE BITARTRATE
     Indication: HEADACHE

REACTIONS (14)
  - Head injury [Unknown]
  - Defaecation disorder [Unknown]
  - Developmental delay [Unknown]
  - Mental disorder [Unknown]
  - Impaired driving ability [Unknown]
  - Back injury [Unknown]
  - Injury [Unknown]
  - Hospitalisation [Unknown]
  - Drug dependence [Unknown]
  - Balance disorder [Unknown]
  - Fall [Unknown]
  - Amnesia [Unknown]
  - Limb injury [Unknown]
  - Intestinal obstruction [Unknown]
